FAERS Safety Report 8058017-4 (Version None)
Quarter: 2012Q1

REPORT INFORMATION
  Report Type: 
  Country: None (occurrence: None)
  Receive Date: 20120120
  Receipt Date: 20120109
  Transmission Date: 20120608
  Serious: Yes (Death, Hospitalization)
  Sender: FDA-Public Use
  Company Number: ES-PAR PHARMACEUTICAL, INC-2011SCPR003484

PATIENT

DRUGS (3)
  1. PENICILLIN [Suspect]
     Indication: BRONCHITIS
     Dosage: UNK, UNKNOWN
     Route: 065
  2. IBUPROFEN [Suspect]
     Indication: BRONCHITIS
     Dosage: UNK, UNKNOWN
     Route: 065
  3. IBUPROFEN [Suspect]
     Indication: BRONCHITIS
     Route: 065

REACTIONS (2)
  - TOXIC EPIDERMAL NECROLYSIS [None]
  - DEATH [None]
